FAERS Safety Report 9448060 (Version 2)
Quarter: 2013Q3

REPORT INFORMATION
  Report Type: Spontaneous
  Country: US (occurrence: US)
  Receive Date: 20130808
  Receipt Date: 20130915
  Transmission Date: 20140515
  Serious: Yes (Hospitalization, Other)
  Sender: FDA-Public Use
  Company Number: US-009507513-1307USA017347

PATIENT
  Age: 69 Year
  Sex: Male

DRUGS (21)
  1. TICE BCG LIVE [Suspect]
     Indication: BLADDER CANCER
     Route: 043
  2. LANTUS [Concomitant]
  3. LIPITOR [Concomitant]
     Dosage: UNK
  4. ADVAIR [Concomitant]
     Dosage: UNK
  5. METOPROLOL [Concomitant]
     Dosage: UNK
  6. PRILOSEC [Concomitant]
     Dosage: UNK
     Route: 048
  7. IMDUR [Concomitant]
     Dosage: UNK
     Route: 048
  8. VENTOLIN (ALBUTEROL SULFATE) [Concomitant]
     Dosage: UNK
  9. PRINIVIL [Concomitant]
     Dosage: UNK
     Route: 048
  10. FLOMAX (TAMSULOSIN HYDROCHLORIDE) [Concomitant]
     Dosage: UNK
  11. GLUCOPHAGE [Concomitant]
     Dosage: UNK
  12. ASPIRIN [Concomitant]
     Dosage: UNK
  13. FUROSEMIDE [Concomitant]
     Dosage: UNK
     Route: 048
  14. AMLODIPINE [Concomitant]
     Dosage: UNK
  15. PLAVIX [Concomitant]
     Dosage: UNK
  16. POTASSIUM (UNSPECIFIED) [Concomitant]
     Dosage: UNK
  17. ENABLEX [Concomitant]
     Dosage: UNK
  18. HEXADROL TABLETS [Concomitant]
     Dosage: UNK
     Route: 048
  19. LORTAB [Concomitant]
     Dosage: UNK
  20. VITAMINS (UNSPECIFIED) [Concomitant]
  21. OMEGA-3 [Concomitant]

REACTIONS (4)
  - Urinary bladder haemorrhage [Recovering/Resolving]
  - Bladder operation [Recovering/Resolving]
  - Bladder neoplasm surgery [Unknown]
  - Bladder neoplasm surgery [Unknown]
